FAERS Safety Report 11467361 (Version 1)
Quarter: 2015Q3

REPORT INFORMATION
  Report Type: Spontaneous
  Country: US (occurrence: None)
  Receive Date: 20150903
  Receipt Date: 20150903
  Transmission Date: 20151125
  Serious: Yes (Other)
  Sender: FDA-Public Use
  Company Number: TPU2015-00284

PATIENT
  Sex: Female
  Weight: 75.75 kg

DRUGS (1)
  1. LIDODERM [Suspect]
     Active Substance: LIDOCAINE
     Indication: SPINAL PAIN
     Dosage: 3 PLASTER
     Route: 061
     Dates: start: 2003

REACTIONS (3)
  - Scoliosis [None]
  - Osteopenia [None]
  - Senile osteoporosis [None]

NARRATIVE: CASE EVENT DATE: 2013
